FAERS Safety Report 26117450 (Version 1)
Quarter: 2025Q4

REPORT INFORMATION
  Report Type: Spontaneous
  Country: US (occurrence: US)
  Receive Date: 20251203
  Receipt Date: 20251203
  Transmission Date: 20260118
  Serious: Yes (Death, Life-Threatening, Hospitalization)
  Sender: AMGEN
  Company Number: US-AMGEN-USASP2025235969

PATIENT
  Age: 62 Year
  Sex: Female

DRUGS (6)
  1. PREDNISONE [Suspect]
     Active Substance: PREDNISONE
     Indication: Paraneoplastic hypoglycaemia
     Dosage: UNK
     Route: 065
  2. CABOZANTINIB [Suspect]
     Active Substance: CABOZANTINIB
     Indication: Adrenocortical carcinoma
     Route: 065
  3. OCTREOTIDE [Concomitant]
     Active Substance: OCTREOTIDE
     Indication: Paraneoplastic hypoglycaemia
  4. OLAPARIB [Concomitant]
     Active Substance: OLAPARIB
     Indication: Adrenocortical carcinoma
  5. IVOSIDENIB [Concomitant]
     Active Substance: IVOSIDENIB
     Indication: Adrenocortical carcinoma
  6. OSILODROSTAT [Concomitant]
     Active Substance: OSILODROSTAT
     Indication: Cushing^s syndrome

REACTIONS (6)
  - Death [Fatal]
  - Hypervolaemia [Unknown]
  - Pancytopenia [Unknown]
  - Paraneoplastic hypoglycaemia [Unknown]
  - Drug ineffective for unapproved indication [Unknown]
  - Off label use [Unknown]
